FAERS Safety Report 19069469 (Version 2)
Quarter: 2021Q2

REPORT INFORMATION
  Report Type: Spontaneous
  Country: GB (occurrence: GB)
  Receive Date: 20210329
  Receipt Date: 20210419
  Transmission Date: 20210717
  Serious: Yes (Other)
  Sender: FDA-Public Use
  Company Number: NVSC2021GB062195

PATIENT
  Age: 53 Year
  Sex: Female
  Weight: 80 kg

DRUGS (1)
  1. PARACETAMOL [Suspect]
     Active Substance: ACETAMINOPHEN
     Indication: PRODUCT USED FOR UNKNOWN INDICATION
     Route: 065

REACTIONS (10)
  - Cough [Unknown]
  - Hot flush [Recovered/Resolved]
  - Nausea [Unknown]
  - Chills [Unknown]
  - Thirst [Unknown]
  - Pain [Unknown]
  - Dysgeusia [Unknown]
  - Abdominal pain upper [Unknown]
  - Headache [Unknown]
  - Parosmia [Unknown]

NARRATIVE: CASE EVENT DATE: 20210206
